FAERS Safety Report 11612273 (Version 1)
Quarter: 2015Q4

REPORT INFORMATION
  Report Type: Spontaneous
  Country: EC (occurrence: EC)
  Receive Date: 20151008
  Receipt Date: 20151008
  Transmission Date: 20160304
  Serious: Yes (Hospitalization)
  Sender: FDA-Public Use
  Company Number: EC-SA-2015SA148526

PATIENT
  Age: 6 Year
  Sex: Male
  Weight: 20 kg

DRUGS (3)
  1. AMOXICILLIN/CLAVULANIC ACID [Concomitant]
     Indication: RESPIRATORY TRACT INFECTION
     Route: 042
     Dates: start: 20150923, end: 20150923
  2. LANTUS [Concomitant]
     Active Substance: INSULIN GLARGINE
     Dosage: DOSE:10 UNIT(S)
  3. APIDRA [Suspect]
     Active Substance: INSULIN GLULISINE
     Indication: DIABETES MELLITUS
     Dosage: 8 IU/MEAL
     Route: 058
     Dates: start: 201509, end: 201509

REACTIONS (1)
  - Ketoacidosis [Recovering/Resolving]

NARRATIVE: CASE EVENT DATE: 20150923
